FAERS Safety Report 12931458 (Version 2)
Quarter: 2017Q4

REPORT INFORMATION
  Report Type: Spontaneous
  Country: US (occurrence: US)
  Receive Date: 20161110
  Receipt Date: 20171211
  Transmission Date: 20180320
  Serious: Yes (Other)
  Sender: FDA-Public Use
  Company Number: US-JNJFOC-20161101855

PATIENT

DRUGS (2)
  1. INFLIXIMAB, RECOMBINANT [Suspect]
     Active Substance: INFLIXIMAB
     Indication: COLITIS ULCERATIVE
     Route: 042
  2. INFLIXIMAB, RECOMBINANT [Suspect]
     Active Substance: INFLIXIMAB
     Indication: CROHN^S DISEASE
     Route: 042

REACTIONS (9)
  - Rectal abscess [Unknown]
  - Genitourinary tract infection [Unknown]
  - Sepsis [Unknown]
  - Mesenteric vascular occlusion [Unknown]
  - Clostridium difficile infection [Unknown]
  - Abdominal abscess [Unknown]
  - Small intestinal obstruction [Unknown]
  - Genital abscess [Unknown]
  - Postoperative wound infection [Unknown]
